FAERS Safety Report 10384047 (Version 10)
Quarter: 2016Q4

REPORT INFORMATION
  Report Type: Report from Study
  Country: CA (occurrence: CA)
  Receive Date: 20140814
  Receipt Date: 20161115
  Transmission Date: 20170206
  Serious: Yes (Hospitalization, Other)
  Sender: FDA-Public Use
  Company Number: PHHY2010CA02065

PATIENT
  Age: 42 Year
  Sex: Male

DRUGS (8)
  1. SANDOSTATIN LAR DEPOT [Suspect]
     Active Substance: OCTREOTIDE ACETATE
     Dosage: 30 MG, QMO (ONCE A MONTH)
     Route: 030
  2. SANDOSTATIN LAR DEPOT [Suspect]
     Active Substance: OCTREOTIDE ACETATE
     Dosage: 30 MG, QMO (EVERY 4 WEEK)
     Route: 030
  3. AFINITOR [Suspect]
     Active Substance: EVEROLIMUS
     Dosage: 10 MG, QD
     Route: 048
     Dates: start: 20110727
  4. SANDOSTATIN LAR DEPOT [Suspect]
     Active Substance: OCTREOTIDE ACETATE
     Dosage: 30 MG, QMO (ONCE A MONTH)
     Route: 030
     Dates: start: 20151112
  5. SUTENT [Concomitant]
     Active Substance: SUNITINIB MALATE
     Indication: ANTIANGIOGENIC THERAPY
     Dosage: 37.5 MG, QD (ONCE A DAY)
     Route: 048
  6. SANDOSTATIN LAR DEPOT [Suspect]
     Active Substance: OCTREOTIDE ACETATE
     Indication: PANCREATIC NEUROENDOCRINE TUMOUR
     Dosage: 20 MG, QMO ( EVERY 4 WEEKS)
     Route: 030
     Dates: start: 20090916, end: 20110209
  7. SANDOSTATIN LAR DEPOT [Suspect]
     Active Substance: OCTREOTIDE ACETATE
     Dosage: 30 MG, QMO ( EVERY 4 WEEKS)
     Route: 030
     Dates: start: 20111027
  8. AFINITOR [Suspect]
     Active Substance: EVEROLIMUS
     Indication: PANCREATIC NEUROENDOCRINE TUMOUR
     Dosage: 10 MG, QD
     Route: 048
     Dates: start: 20090916, end: 20110209

REACTIONS (15)
  - Dehydration [Recovering/Resolving]
  - Pyrexia [Recovered/Resolved]
  - Vomiting [Recovering/Resolving]
  - Flatulence [Recovered/Resolved]
  - Fatigue [Unknown]
  - Malaise [Recovering/Resolving]
  - Blood pressure increased [Unknown]
  - Ear pain [Unknown]
  - Stomatitis [Unknown]
  - Diarrhoea [Recovering/Resolving]
  - Abdominal distension [Recovered/Resolved]
  - Ear infection [Not Recovered/Not Resolved]
  - Pyrexia [Recovered/Resolved]
  - Nausea [Recovered/Resolved]
  - Blood glucose increased [Unknown]

NARRATIVE: CASE EVENT DATE: 20140131
